FAERS Safety Report 16921075 (Version 1)
Quarter: 2019Q4

REPORT INFORMATION
  Report Type: Spontaneous
  Country: GB (occurrence: GB)
  Receive Date: 20191015
  Receipt Date: 20191015
  Transmission Date: 20200122
  Serious: Yes (Other)
  Sender: FDA-Public Use
  Company Number: GB-MYLANLABS-2019M1096274

PATIENT
  Age: 40 Year
  Sex: Male
  Weight: 100 kg

DRUGS (2)
  1. CETIRIZINE DIHYDROCHLORIDE [Concomitant]
     Active Substance: CETIRIZINE HYDROCHLORIDE
  2. CLARITHROMYCIN. [Suspect]
     Active Substance: CLARITHROMYCIN
     Indication: INFECTED DERMAL CYST
     Dosage: 250MG TWICE A DAY? (UNCERTAIN, AS DISPOSED OF PACKET)
     Route: 048
     Dates: start: 20190610, end: 20190616

REACTIONS (5)
  - Dysgeusia [Recovered/Resolved]
  - Insomnia [Recovered/Resolved]
  - Hyperhidrosis [Recovered/Resolved]
  - Ageusia [Recovered/Resolved]
  - Drug ineffective [Unknown]
